FAERS Safety Report 22820975 (Version 4)
Quarter: 2024Q1

REPORT INFORMATION
  Report Type: Spontaneous
  Country: US (occurrence: US)
  Receive Date: 20230814
  Receipt Date: 20240206
  Transmission Date: 20240410
  Serious: Yes (Other)
  Sender: FDA-Public Use
  Company Number: US-PFIZER INC-PV202300138704

PATIENT
  Age: 68 Year
  Sex: Female
  Weight: 81.4 kg

DRUGS (5)
  1. BOSULIF [Suspect]
     Active Substance: BOSUTINIB MONOHYDRATE
     Indication: Chronic myeloid leukaemia
     Dosage: 500 MG, DAILY
  2. BOSULIF [Suspect]
     Active Substance: BOSUTINIB MONOHYDRATE
     Dosage: 200 MG, DAILY
  3. BOSULIF [Suspect]
     Active Substance: BOSUTINIB MONOHYDRATE
     Dosage: 100 MG, DAILY
  4. BOSULIF [Suspect]
     Active Substance: BOSUTINIB MONOHYDRATE
     Dosage: 100 MG, CYCLIC, (3 TIMES A WEEK)
     Route: 048
  5. BOSULIF [Suspect]
     Active Substance: BOSUTINIB MONOHYDRATE
     Dosage: 100 MG, CYCLIC, (1 TABLET BY MOUTH DAILY FOR 5 DAYS A WEEK AND 2 DAYS OFF)
     Route: 048

REACTIONS (6)
  - Shoulder fracture [Unknown]
  - Fall [Unknown]
  - Arthralgia [Unknown]
  - Neoplasm progression [Unknown]
  - Hepatic enzyme increased [Recovering/Resolving]
  - Off label use [Unknown]
